FAERS Safety Report 7936844-9 (Version None)
Quarter: 2011Q4

REPORT INFORMATION
  Report Type: 
  Country: None (occurrence: None)
  Receive Date: 20111123
  Receipt Date: 20111111
  Transmission Date: 20120403
  Serious: Yes (Other)
  Sender: FDA-Public Use
  Company Number: US-ROCHE-1010348

PATIENT
  Sex: Female
  Weight: 77.18 kg

DRUGS (6)
  1. ACTEMRA [Suspect]
     Indication: RHEUMATOID ARTHRITIS
     Route: 042
     Dates: start: 20101201
  2. PRISTIQ [Concomitant]
     Indication: DEPRESSION
  3. PREDNISONE [Concomitant]
  4. NEXIUM [Concomitant]
     Indication: ABDOMINAL DISCOMFORT
  5. KLONOPIN [Concomitant]
     Indication: ANXIETY
  6. CRESTOR [Concomitant]
     Indication: BLOOD CHOLESTEROL
     Dosage: AT NIGHT ONLY.

REACTIONS (6)
  - BIOPSY VAGINA ABNORMAL [None]
  - VULVECTOMY [None]
  - HYPERKERATOSIS [None]
  - SKIN DEPIGMENTATION [None]
  - VAGINAL DISORDER [None]
  - VULVOVAGINAL PAIN [None]
